FAERS Safety Report 14808357 (Version 3)
Quarter: 2018Q2

REPORT INFORMATION
  Report Type: Report from Study
  Country: US (occurrence: US)
  Receive Date: 20180425
  Receipt Date: 20180622
  Transmission Date: 20180711
  Serious: Yes (Hospitalization, Other)
  Sender: FDA-Public Use
  Company Number: US-AMGEN-USASL2018015288

PATIENT
  Age: 79 Year
  Sex: Female

DRUGS (2)
  1. REPATHA [Suspect]
     Active Substance: EVOLOCUMAB
     Indication: BLOOD CHOLESTEROL INCREASED
     Dosage: 140 MG, Q2WK
     Route: 065
     Dates: start: 20160920
  2. REPATHA [Suspect]
     Active Substance: EVOLOCUMAB
     Indication: HYPERCHOLESTEROLAEMIA
     Dosage: 140 MG, QMO
     Route: 065

REACTIONS (11)
  - Dysphonia [Unknown]
  - Off label use [Unknown]
  - Blood cholesterol decreased [Unknown]
  - Blood triglycerides increased [Unknown]
  - Unevaluable event [Unknown]
  - Muscle spasms [Unknown]
  - Corrective lens user [Unknown]
  - Fall [Unknown]
  - Cough [Unknown]
  - Sleep disorder due to general medical condition, insomnia type [Unknown]
  - Femur fracture [Unknown]

NARRATIVE: CASE EVENT DATE: 2017
